FAERS Safety Report 26194821 (Version 1)
Quarter: 2025Q4

REPORT INFORMATION
  Report Type: Spontaneous
  Country: CN (occurrence: CN)
  Receive Date: 20251224
  Receipt Date: 20251224
  Transmission Date: 20260118
  Serious: Yes (Other)
  Sender: EISAI
  Company Number: CN-Eisai-EC-2025-202282

PATIENT
  Age: 56 Year
  Sex: Female
  Weight: 60 kg

DRUGS (1)
  1. LENVATINIB [Suspect]
     Active Substance: LENVATINIB
     Indication: Hepatic cancer
     Route: 048
     Dates: start: 20251108, end: 20251201

REACTIONS (1)
  - Hypersplenism [Recovering/Resolving]

NARRATIVE: CASE EVENT DATE: 20251201
